FAERS Safety Report 8782175 (Version 2)
Quarter: 2012Q4

REPORT INFORMATION
  Report Type: 
  Country: US (occurrence: US)
  Receive Date: 20120913
  Receipt Date: 20121001
  Transmission Date: 20130627
  Serious: No
  Sender: FDA-Public Use
  Company Number: US-PFIZER INC-2012223145

PATIENT
  Age: 90 Year
  Sex: Male
  Weight: 81.63 kg

DRUGS (3)
  1. ADVIL [Suspect]
     Indication: EAR PAIN
     Dosage: 400 mg (200mg two tablets)
     Route: 048
     Dates: start: 20120909
  2. CARBAMAZEPINE [Concomitant]
     Indication: JAW DISORDER
     Dosage: 200 mg, two times a day
     Route: 048
     Dates: start: 20120907
  3. CARBAMAZEPINE [Concomitant]
     Indication: EAR DISORDER

REACTIONS (1)
  - Dysuria [Recovered/Resolved]
